FAERS Safety Report 7134717-5 (Version None)
Quarter: 2010Q4

REPORT INFORMATION
  Report Type: 
  Country: None (occurrence: None)
  Receive Date: 20101203
  Receipt Date: 20101130
  Transmission Date: 20110411
  Serious: Yes (Death)
  Sender: FDA-Public Use
  Company Number: JP-SANOFI-AVENTIS-2010SA072462

PATIENT
  Age: 65 Year
  Sex: Male

DRUGS (14)
  1. APIDRA [Suspect]
     Route: 058
     Dates: start: 20101105, end: 20101112
  2. SOLOSTAR [Suspect]
     Dates: start: 20101105, end: 20101112
  3. LANTUS [Suspect]
     Route: 058
     Dates: start: 20101103, end: 20101103
  4. LANTUS [Suspect]
     Route: 058
     Dates: start: 20101104, end: 20101112
  5. SOLOSTAR [Suspect]
     Dates: start: 20101105, end: 20101112
  6. AMLODIPINE [Concomitant]
  7. AVAPRO [Concomitant]
  8. FENTANYL CITRATE [Concomitant]
  9. OXYCODONE HCL [Concomitant]
  10. MAGLAX [Concomitant]
  11. PRIMPERAN [Concomitant]
  12. LENDORMIN [Concomitant]
  13. NOVORAPID [Concomitant]
     Dates: end: 20101102
  14. INSULIN DETEMIR [Concomitant]
     Dates: end: 20101102

REACTIONS (4)
  - APHAGIA [None]
  - CONDITION AGGRAVATED [None]
  - DIABETES MELLITUS INADEQUATE CONTROL [None]
  - PANCREATIC CARCINOMA [None]
